FAERS Safety Report 24094995 (Version 2)
Quarter: 2024Q3

REPORT INFORMATION
  Report Type: Spontaneous
  Country: FR (occurrence: FR)
  Receive Date: 20240716
  Receipt Date: 20240731
  Transmission Date: 20241017
  Serious: Yes (Hospitalization)
  Sender: ROCHE
  Company Number: FR-ROCHE-10000008183

PATIENT
  Age: 6 Decade
  Sex: Female
  Weight: 64 kg

DRUGS (2)
  1. MYCOPHENOLATE MOFETIL [Suspect]
     Active Substance: MYCOPHENOLATE MOFETIL
     Indication: Prophylaxis against transplant rejection
     Dosage: PER OS
     Route: 065
     Dates: start: 202107
  2. TACROLIMUS [Suspect]
     Active Substance: TACROLIMUS
     Indication: Prophylaxis against transplant rejection
     Dosage: 10 MG PER OS BEGINNING AT THE 3TH DAY,10
     Route: 065
     Dates: start: 202107

REACTIONS (2)
  - Hepatitis E [Recovered/Resolved]
  - Lymphopenia [Unknown]
